FAERS Safety Report 8470219 (Version 2)
Quarter: 2013Q3

REPORT INFORMATION
  Report Type: Spontaneous
  Country: FR (occurrence: FR)
  Receive Date: 20120321
  Receipt Date: 20130715
  Transmission Date: 20140515
  Serious: Yes (Hospitalization)
  Sender: FDA-Public Use
  Company Number: FR-AMGEN-FRASP2012016173

PATIENT
  Age: 38 Year
  Sex: Female

DRUGS (5)
  1. ENBREL [Suspect]
     Indication: PRODUCT USED FOR UNKNOWN INDICATION
     Dosage: 50 MG, WEEKLY
     Route: 058
     Dates: start: 2004, end: 2011
  2. CORTANCYL [Concomitant]
     Dosage: UNK
     Dates: start: 2004
  3. DOLIPRANE [Concomitant]
     Dosage: UNK
     Dates: start: 2004
  4. INEXIUM                            /01479302/ [Concomitant]
     Dosage: UNK
     Dates: start: 2004
  5. TOPALGIC                           /00599202/ [Concomitant]
     Dosage: UNK
     Dates: start: 2011

REACTIONS (1)
  - Thyroid cancer [Recovered/Resolved]
